FAERS Safety Report 21441339 (Version 1)
Quarter: 2022Q4

REPORT INFORMATION
  Report Type: Spontaneous
  Country: None (occurrence: RU)
  Receive Date: 20221011
  Receipt Date: 20221011
  Transmission Date: 20230113
  Serious: Yes (Life-Threatening)
  Sender: FDA-Public Use
  Company Number: RU-B.Braun Medical Inc.-2133698

PATIENT
  Age: 75 Year
  Sex: Female
  Weight: 91 kg

DRUGS (5)
  1. SODIUM CHLORIDE [Suspect]
     Active Substance: SODIUM CHLORIDE
  2. Acetylsalicylic Acid + Mag [Concomitant]
  3. GLICLAZIDE [Concomitant]
     Active Substance: GLICLAZIDE
  4. LOSARTAN [Concomitant]
     Active Substance: LOSARTAN
  5. THIOCTIC ACID [Suspect]
     Active Substance: THIOCTIC ACID

REACTIONS (1)
  - Angioedema [Recovered/Resolved]
